FAERS Safety Report 6707395-4 (Version None)
Quarter: 2010Q2

REPORT INFORMATION
  Report Type: 
  Country: None (occurrence: None)
  Receive Date: 20100503
  Receipt Date: 20090521
  Transmission Date: 20101027
  Serious: No
  Sender: FDA-Public Use
  Company Number: US-ASTRAZENECA-2009UW09468

PATIENT
  Age: 54 Year
  Sex: Male
  Weight: 113.4 kg

DRUGS (1)
  1. NEXIUM [Suspect]
     Indication: GASTROOESOPHAGEAL REFLUX DISEASE
     Route: 048

REACTIONS (3)
  - DYSGEUSIA [None]
  - FEELING ABNORMAL [None]
  - GASTRIC DISORDER [None]
